FAERS Safety Report 5782918-0 (Version None)
Quarter: 2008Q2

REPORT INFORMATION
  Report Type: 
  Country: None (occurrence: None)
  Receive Date: 20080624
  Receipt Date: 20080611
  Transmission Date: 20081010
  Serious: Yes (Other)
  Sender: FDA-Public Use
  Company Number: JP-MERCK-0805USA06535

PATIENT
  Age: 71 Year
  Sex: Female

DRUGS (7)
  1. ZETIA [Suspect]
     Indication: HYPERLIPIDAEMIA
     Route: 048
     Dates: start: 20080514, end: 20080515
  2. AMLODIPINE BESYLATE [Concomitant]
     Route: 065
     Dates: start: 20070301
  3. ETIZOLAM [Concomitant]
     Route: 065
     Dates: start: 20070301
  4. AZOSEMIDE [Concomitant]
     Route: 065
     Dates: start: 20070401
  5. ASPIRIN [Concomitant]
     Route: 065
     Dates: start: 20070701
  6. OLMESARTAN MEDOXOMIL [Concomitant]
     Route: 065
     Dates: start: 20071101
  7. PRAVASTATIN SODIUM [Concomitant]
     Route: 065
     Dates: start: 20080401

REACTIONS (1)
  - DRUG ERUPTION [None]
